FAERS Safety Report 8390408-4 (Version None)
Quarter: 2012Q2

REPORT INFORMATION
  Report Type: 
  Country: None (occurrence: None)
  Receive Date: 20120517
  Receipt Date: 20120511
  Transmission Date: 20120825
  Serious: Yes (Other)
  Sender: FDA-Public Use
  Company Number: B0801232A

PATIENT
  Age: 12 Year
  Sex: Female

DRUGS (1)
  1. KETOCONAZOLE [Suspect]
     Indication: CUSHING'S SYNDROME
     Dosage: 800 DAY/PER DAY/

REACTIONS (4)
  - DRUG INEFFECTIVE [None]
  - PAPILLOEDEMA [None]
  - SINUSITIS [None]
  - INTRACRANIAL PRESSURE INCREASED [None]
